FAERS Safety Report 12148099 (Version 3)
Quarter: 2017Q2

REPORT INFORMATION
  Report Type: Spontaneous
  Country: US (occurrence: US)
  Receive Date: 20160304
  Receipt Date: 20170403
  Transmission Date: 20170829
  Serious: No
  Sender: FDA-Public Use
  Company Number: US-CELGENEUS-USA-2016030144

PATIENT
  Age: 63 Year
  Sex: Male

DRUGS (4)
  1. TRICOR [Concomitant]
     Active Substance: FENOFIBRATE
     Indication: BLOOD TRIGLYCERIDES INCREASED
     Route: 065
  2. AMBIEN [Concomitant]
     Active Substance: ZOLPIDEM TARTRATE
     Indication: PRODUCT USED FOR UNKNOWN INDICATION
     Route: 065
  3. OTEZLA [Suspect]
     Active Substance: APREMILAST
     Indication: PSORIASIS
     Dosage: 60MG
     Route: 048
     Dates: start: 20151214
  4. RITALIN [Concomitant]
     Active Substance: METHYLPHENIDATE HYDROCHLORIDE
     Indication: PRODUCT USED FOR UNKNOWN INDICATION
     Route: 065

REACTIONS (7)
  - Back pain [Recovered/Resolved]
  - Pruritus [Recovered/Resolved]
  - Arthralgia [Recovering/Resolving]
  - Weight decreased [Recovered/Resolved]
  - Insomnia [Recovering/Resolving]
  - Pain in extremity [Recovering/Resolving]
  - Influenza like illness [Recovered/Resolved]

NARRATIVE: CASE EVENT DATE: 20151228
